FAERS Safety Report 7803156-3 (Version None)
Quarter: 2011Q4

REPORT INFORMATION
  Report Type: 
  Country: None (occurrence: None)
  Receive Date: 20111007
  Receipt Date: 20110721
  Transmission Date: 20120403
  Serious: No
  Sender: FDA-Public Use
  Company Number: US-ABBOTT-11P-163-0840649-00

PATIENT
  Age: 32 Year
  Sex: Female

DRUGS (6)
  1. RETROVIR [Suspect]
     Indication: ANTIRETROVIRAL THERAPY
     Dosage: COURSE 1: 2 MG/KG/HR
     Route: 042
     Dates: start: 20110703, end: 20110703
  2. PCP [Concomitant]
     Indication: PRODUCT USED FOR UNKNOWN INDICATION
  3. XANAX [Concomitant]
     Indication: PRODUCT USED FOR UNKNOWN INDICATION
  4. KALETRA [Suspect]
     Indication: ANTIRETROVIRAL THERAPY
     Route: 048
  5. EPZICOM [Suspect]
     Indication: ANTIRETROVIRAL THERAPY
     Dosage: 1 TABS/CAPS DAILY
     Route: 048
  6. RETROVIR [Suspect]
     Dosage: COURSE 2: 1 MG/KG/HR
     Route: 042
     Dates: start: 20110703, end: 20110703

REACTIONS (4)
  - BIPOLAR I DISORDER [None]
  - DEPRESSION [None]
  - TREATMENT NONCOMPLIANCE [None]
  - THROMBOCYTOPENIA [None]
